FAERS Safety Report 5852954-4 (Version None)
Quarter: 2008Q3

REPORT INFORMATION
  Report Type: 
  Country: None (occurrence: None)
  Receive Date: 20080814
  Receipt Date: 20080617
  Transmission Date: 20090109
  Serious: No
  Sender: FDA-Public Use
  Company Number: WAES 0806USA03444

PATIENT
  Age: 39 Year
  Sex: Male

DRUGS (5)
  1. ISENTRESS [Suspect]
     Indication: HIV INFECTION
     Dosage: 400 MG/BID/PO
     Route: 048
     Dates: end: 20080603
  2. BIAXIN [Concomitant]
  3. PREZISTA [Concomitant]
  4. TRUVADA [Concomitant]
  5. DAPSONE [Concomitant]

REACTIONS (2)
  - BLOOD CALCIUM INCREASED [None]
  - BLOOD CREATININE INCREASED [None]
